FAERS Safety Report 16663789 (Version 1)
Quarter: 2019Q3

REPORT INFORMATION
  Report Type: Spontaneous
  Country: US (occurrence: US)
  Receive Date: 20190619
  Receipt Date: 20190619
  Transmission Date: 20191004
  Serious: Yes (Other)
  Sender: FDA-Public Use
  Company Number: None

PATIENT
  Age: 67 Year
  Sex: Male
  Weight: 81.65 kg

DRUGS (15)
  1. METROPROLOL [Concomitant]
     Active Substance: METOPROLOL
  2. ODEFSEY [Concomitant]
     Active Substance: EMTRICITABINE\RILPIVIRINE HYDROCHLORIDE\TENOFOVIR ALAFENAMIDE FUMARATE
  3. FISH OIL [Concomitant]
     Active Substance: FISH OIL
  4. GLUCOSAMINE [Concomitant]
     Active Substance: GLUCOSAMINE
  5. VITAMIN E [Concomitant]
     Active Substance: .ALPHA.-TOCOPHEROL
  6. CHANTIX [Suspect]
     Active Substance: VARENICLINE TARTRATE
     Indication: SMOKING CESSATION THERAPY
     Dosage: ?          QUANTITY:0.5 MG MILLIGRAM(S);?
     Route: 048
     Dates: start: 20190525, end: 20190607
  7. TAMSULOSIN HCL [Concomitant]
     Active Substance: TAMSULOSIN HYDROCHLORIDE
  8. ROSAVUSTATIN CA [Concomitant]
  9. LISINOPRIL. [Concomitant]
     Active Substance: LISINOPRIL
  10. CHONDROITIN [Concomitant]
     Active Substance: CHONDROITIN
  11. PACEMAKER [Concomitant]
  12. BABY ASPIRIN [Suspect]
     Active Substance: ASPIRIN
  13. OXYBUTYNIN. [Concomitant]
     Active Substance: OXYBUTYNIN CHLORIDE
  14. MULTIVITAMIN [Concomitant]
     Active Substance: VITAMINS
  15. VITAMIN D [Suspect]
     Active Substance: VITAMIN D NOS

REACTIONS (10)
  - Nightmare [None]
  - Taste disorder [None]
  - Product complaint [None]
  - Personality change [None]
  - Discomfort [None]
  - Dry mouth [None]
  - Hypersomnia [None]
  - Emotional disorder [None]
  - Dry eye [None]
  - Crying [None]

NARRATIVE: CASE EVENT DATE: 20190601
